FAERS Safety Report 8567431-X (Version None)
Quarter: 2012Q3

REPORT INFORMATION
  Report Type: 
  Country: None (occurrence: None)
  Receive Date: 20120803
  Receipt Date: 20110916
  Transmission Date: 20120928
  Serious: No
  Sender: FDA-Public Use
  Company Number: US-ABBOTT-11P-163-0855548-00

PATIENT
  Sex: Male
  Weight: 136.2 kg

DRUGS (10)
  1. ASPIRIN [Concomitant]
     Indication: PREMEDICATION
  2. HYZAAR [Concomitant]
     Indication: HYPERTENSION
  3. PRILOSEC [Concomitant]
     Indication: DYSPEPSIA
  4. BYSTOLIC [Concomitant]
     Indication: HYPERTENSION
  5. NIASPAN [Suspect]
     Indication: BLOOD TRIGLYCERIDES INCREASED
     Dosage: AT HOUR OF SLEEP
     Dates: start: 20100101, end: 20110201
  6. NIASPAN [Suspect]
     Indication: LOW DENSITY LIPOPROTEIN INCREASED
     Dosage: AT HOUR OF SLEEP
  7. SIMVASTATIN [Suspect]
     Indication: PRODUCT USED FOR UNKNOWN INDICATION
  8. MULTI-VITAMINS [Concomitant]
     Indication: PRODUCT USED FOR UNKNOWN INDICATION
  9. NIASPAN [Suspect]
     Indication: HIGH DENSITY LIPOPROTEIN DECREASED
     Dosage: AT HOUR OF SLEEP
     Dates: start: 20110201
  10. FISH OIL [Concomitant]
     Indication: PRODUCT USED FOR UNKNOWN INDICATION

REACTIONS (2)
  - BLOOD TRIGLYCERIDES INCREASED [None]
  - FLUSHING [None]
